FAERS Safety Report 17951867 (Version 1)
Quarter: 2020Q2

REPORT INFORMATION
  Report Type: Spontaneous
  Country: PL (occurrence: PL)
  Receive Date: 20200626
  Receipt Date: 20200626
  Transmission Date: 20200714
  Serious: Yes (Other)
  Sender: FDA-Public Use
  Company Number: NVSC2020PL175785

PATIENT
  Sex: Male
  Weight: 83 kg

DRUGS (1)
  1. SANDOSTATIN LAR DEPOT [Suspect]
     Active Substance: OCTREOTIDE ACETATE
     Indication: NEUROENDOCRINE TUMOUR
     Dosage: UNK
     Route: 065
     Dates: start: 20161123

REACTIONS (14)
  - Peripheral swelling [Unknown]
  - Erythema [Unknown]
  - Tricuspid valve incompetence [Unknown]
  - Hepatomegaly [Unknown]
  - Pulmonary valve stenosis [Unknown]
  - Neuroendocrine tumour [Unknown]
  - Pulmonary hypertension [Unknown]
  - Hypertension [Unknown]
  - Malignant neoplasm progression [Unknown]
  - Weight increased [Unknown]
  - Carcinoid heart disease [Unknown]
  - Renal function test abnormal [Unknown]
  - Hot flush [Unknown]
  - Infection [Unknown]

NARRATIVE: CASE EVENT DATE: 20170314
